FAERS Safety Report 23399673 (Version 1)
Quarter: 2024Q1

REPORT INFORMATION
  Report Type: Spontaneous
  Country: None (occurrence: US)
  Receive Date: 20240113
  Receipt Date: 20240113
  Transmission Date: 20240409
  Serious: No
  Sender: FDA-Public Use
  Company Number: US-Marksans Pharma Limited-2151156

PATIENT
  Age: 84 Year
  Sex: Female

DRUGS (1)
  1. IBUPROFEN [Suspect]
     Active Substance: IBUPROFEN
     Indication: Procedural pain

REACTIONS (1)
  - Pruritus [None]
